FAERS Safety Report 15813888 (Version 1)
Quarter: 2019Q1

REPORT INFORMATION
  Report Type: Spontaneous
  Country: US (occurrence: US)
  Receive Date: 20190111
  Receipt Date: 20190111
  Transmission Date: 20190417
  Serious: Yes (Hospitalization, Other)
  Sender: FDA-Public Use
  Company Number: None

PATIENT
  Age: 56 Year
  Sex: Female

DRUGS (11)
  1. CRUSH VIT C [Concomitant]
  2. PREMARIN INJ [Concomitant]
  3. CALCIUM CHEW [Concomitant]
  4. FISH OIL [Concomitant]
     Active Substance: FISH OIL
  5. FLUTICASONE SPRAY [Concomitant]
     Active Substance: FLUTICASONE
  6. LAURIC ACID [Concomitant]
  7. WOMENS CAP MULTI [Concomitant]
  8. HUMIRA [Suspect]
     Active Substance: ADALIMUMAB
     Indication: PSORIASIS
     Dosage: ?          OTHER FREQUENCY:EVERY OTHER WEEK;?
     Route: 058
     Dates: start: 20171011
  9. IODINE. [Concomitant]
     Active Substance: IODINE
  10. VITAMIN D3 [Concomitant]
     Active Substance: CHOLECALCIFEROL
  11. MAGNESIUM TABLET [Concomitant]

REACTIONS (3)
  - Diarrhoea [None]
  - Condition aggravated [None]
  - Surgery [None]

NARRATIVE: CASE EVENT DATE: 20181001
